FAERS Safety Report 10633275 (Version 1)
Quarter: 2014Q4

REPORT INFORMATION
  Report Type: Spontaneous
  Country: US (occurrence: None)
  Receive Date: 20141121
  Receipt Date: 20141121
  Transmission Date: 20150529
  Serious: No
  Sender: FDA-Public Use
  Company Number: 163-10004-14084366

PATIENT
  Age: 75 Year
  Sex: Female

DRUGS (1)
  1. OTEZLA [Suspect]
     Active Substance: APREMILAST
     Indication: PSORIATIC ARTHROPATHY
     Dosage: TITRATION
     Route: 048
     Dates: start: 20140808, end: 20140811

REACTIONS (4)
  - Activities of daily living impaired [None]
  - Aphonia [None]
  - Decreased appetite [None]
  - Depressed mood [None]

NARRATIVE: CASE EVENT DATE: 20140808
